FAERS Safety Report 5896373-3 (Version None)
Quarter: 2008Q3

REPORT INFORMATION
  Report Type: 
  Country: None (occurrence: None)
  Receive Date: 20080924
  Receipt Date: 20071010
  Transmission Date: 20090109
  Serious: Yes (Hospitalization)
  Sender: FDA-Public Use
  Company Number: US-ASTRAZENECA-2007UW23536

PATIENT
  Age: 48 Year
  Sex: Female
  Weight: 61.2 kg

DRUGS (7)
  1. SEROQUEL [Suspect]
     Indication: BIPOLAR I DISORDER
     Dosage: 100 MG IN MORNING AND 100 MG IN AFTERNOON AND 300 MG AT NIGHT
     Route: 048
  2. SEROQUEL [Suspect]
     Indication: DEPRESSION
     Dosage: 100 MG IN MORNING AND 100 MG IN AFTERNOON AND 300 MG AT NIGHT
     Route: 048
  3. WELLBUTRIN [Concomitant]
  4. AMITRIPTYLINE HCL [Concomitant]
  5. PROZAC [Concomitant]
  6. BUSPAR [Concomitant]
  7. VITAMIN [Concomitant]

REACTIONS (2)
  - CONVULSION [None]
  - WEIGHT INCREASED [None]
